FAERS Safety Report 16824344 (Version 1)
Quarter: 2019Q3

REPORT INFORMATION
  Report Type: Spontaneous
  Country: US (occurrence: US)
  Receive Date: 20190918
  Receipt Date: 20190918
  Transmission Date: 20191005
  Serious: Yes (Other)
  Sender: FDA-Public Use
  Company Number: US-TEVA-2019-US-1107681

PATIENT

DRUGS (2)
  1. LOMUSTINE. [Suspect]
     Active Substance: LOMUSTINE
     Indication: GLIOBLASTOMA
     Route: 065
  2. TEMOZOLOMIDE. [Suspect]
     Active Substance: TEMOZOLOMIDE
     Indication: GLIOBLASTOMA
     Route: 065

REACTIONS (1)
  - Glioblastoma [Unknown]
